FAERS Safety Report 7122978-8 (Version None)
Quarter: 2010Q4

REPORT INFORMATION
  Report Type: 
  Country: None (occurrence: None)
  Receive Date: 20101124
  Receipt Date: 20101029
  Transmission Date: 20110411
  Serious: Yes (Death)
  Sender: FDA-Public Use
  Company Number: US-AMGEN-USASP2010003002

PATIENT
  Sex: Female
  Weight: 63.492 kg

DRUGS (9)
  1. PROCRIT [Suspect]
     Indication: HAEMOGLOBIN DECREASED
     Dosage: 10000 IU, UNK
     Route: 058
     Dates: start: 20100801, end: 20100901
  2. HUMULINE                           /01466201/ [Concomitant]
     Indication: DIABETES MELLITUS
     Dosage: 60 UNK, QD
     Route: 058
     Dates: end: 20100901
  3. LASIX [Concomitant]
     Indication: FLUID RETENTION
  4. ZOCOR [Concomitant]
     Indication: BLOOD CHOLESTEROL
     Dosage: 40 MG, QD
     Route: 048
     Dates: end: 20100901
  5. ALDACTONE [Concomitant]
     Indication: FLUID RETENTION
     Dosage: 50 MG, QD
     Route: 048
     Dates: end: 20100901
  6. CREON [Concomitant]
     Indication: DYSPEPSIA
     Dosage: UNK
     Dates: end: 20100901
  7. DIGOXIN [Concomitant]
     Indication: CARDIOVERSION
     Dosage: 125 UNK, UNK
     Dates: end: 20100901
  8. LASIX [Concomitant]
     Dosage: UNK
     Dates: start: 20100901, end: 20100901
  9. LOPRESSOR [Concomitant]

REACTIONS (3)
  - CARDIAC FAILURE CONGESTIVE [None]
  - RENAL FAILURE [None]
  - URINE OUTPUT DECREASED [None]
